FAERS Safety Report 8083246-3 (Version None)
Quarter: 2012Q1

REPORT INFORMATION
  Report Type: 
  Country: None (occurrence: None)
  Receive Date: 20120127
  Receipt Date: 20110302
  Transmission Date: 20120608
  Serious: No
  Sender: FDA-Public Use
  Company Number: US-ABBOTT-11P-163-0708991-00

PATIENT
  Age: 48 Year
  Sex: Female

DRUGS (7)
  1. FLEXERIL [Concomitant]
     Indication: ARTHRALGIA
  2. CLOBETASOL [Concomitant]
     Indication: PSORIASIS
  3. HUMIRA [Suspect]
     Indication: PSORIASIS
     Dates: start: 20110119
  4. HYDROCODONE BITARTRATE [Concomitant]
     Indication: ARTHRITIS
     Dosage: UNKNOWN DOSAGE
  5. FLUOCINONIDE [Concomitant]
     Indication: SKIN DISORDER
  6. SYNTHROID [Concomitant]
     Indication: HYPOTHYROIDISM
  7. PROTOPIC [Concomitant]
     Indication: PSORIASIS

REACTIONS (1)
  - DRUG INEFFECTIVE [None]
